FAERS Safety Report 9776738 (Version 2)
Quarter: 2014Q1

REPORT INFORMATION
  Report Type: Spontaneous
  Country: JP (occurrence: JP)
  Receive Date: 20131220
  Receipt Date: 20140124
  Transmission Date: 20141002
  Serious: Yes (Other)
  Sender: FDA-Public Use
  Company Number: JP-ASTRAZENECA-2013SE91565

PATIENT
  Sex: Female

DRUGS (1)
  1. ANASTROZOLE (NON AZ PRODUCT) [Suspect]
     Route: 048

REACTIONS (1)
  - Uterine cancer [Unknown]
